FAERS Safety Report 6676854-5 (Version None)
Quarter: 2010Q2

REPORT INFORMATION
  Report Type: 
  Country: None (occurrence: None)
  Receive Date: 20100412
  Receipt Date: 20100401
  Transmission Date: 20101027
  Serious: Yes (Death)
  Sender: FDA-Public Use
  Company Number: US-BAXTER-2010BH008747

PATIENT
  Age: 59 Year
  Sex: Male

DRUGS (14)
  1. ARALAST NP [Suspect]
     Indication: ALPHA-1 ANTI-TRYPSIN DEFICIENCY
     Route: 042
     Dates: start: 20060101, end: 20100331
  2. ASPIRIN [Concomitant]
  3. KLOR-CON [Concomitant]
  4. FUROSEMIDE [Concomitant]
  5. DIOVANE [Concomitant]
  6. AMLODIPINE [Concomitant]
  7. PLAVIX [Concomitant]
  8. CARVEDILOL [Concomitant]
  9. ACETAZOLAMIDE [Concomitant]
  10. CENTRUM SILVER [Concomitant]
  11. VITAMIN C [Concomitant]
  12. FLOVENT [Concomitant]
     Route: 055
  13. ALBUTEROL [Concomitant]
     Route: 055
  14. IPRATROPIUM [Concomitant]
     Route: 055

REACTIONS (1)
  - DEATH [None]
